FAERS Safety Report 7031761-3 (Version None)
Quarter: 2010Q4

REPORT INFORMATION
  Report Type: 
  Country: None (occurrence: None)
  Receive Date: 20101007
  Receipt Date: 20100927
  Transmission Date: 20110411
  Serious: No
  Sender: FDA-Public Use
  Company Number: US-BIOGENIDEC-2010BI029246

PATIENT
  Age: 56 Year
  Sex: Female

DRUGS (1)
  1. TYSABRI [Suspect]
     Indication: MULTIPLE SCLEROSIS
     Route: 042
     Dates: start: 20100114

REACTIONS (12)
  - ARTHRALGIA [None]
  - ASTHENIA [None]
  - DYSPNOEA [None]
  - EYE PAIN [None]
  - FLUSHING [None]
  - HEADACHE [None]
  - INCREASED TENDENCY TO BRUISE [None]
  - INCREASED UPPER AIRWAY SECRETION [None]
  - PAIN [None]
  - PAIN IN EXTREMITY [None]
  - POSTURE ABNORMAL [None]
  - WHEEZING [None]
